FAERS Safety Report 9543226 (Version 1)
Quarter: 2013Q3

REPORT INFORMATION
  Report Type: Spontaneous
  Country: US (occurrence: US)
  Receive Date: 20130923
  Receipt Date: 20130923
  Transmission Date: 20140515
  Serious: No
  Sender: FDA-Public Use
  Company Number: US-PURDUE-USA-2012-0081425

PATIENT
  Age: 89 Year
  Sex: Female
  Weight: 79.37 kg

DRUGS (4)
  1. DILAUDID TABLET [Suspect]
     Indication: SPINAL COLUMN STENOSIS
     Dosage: UNK, PRN
     Dates: start: 20120105
  2. FENTANYL /00174602/ [Suspect]
     Indication: SPINAL COLUMN STENOSIS
     Dosage: 50 MCG, Q1H
     Route: 062
  3. SYNTHROID [Concomitant]
     Indication: PRODUCT USED FOR UNKNOWN INDICATION
     Dosage: UNK
  4. DIOVAN [Concomitant]
     Indication: PRODUCT USED FOR UNKNOWN INDICATION
     Dosage: UNK

REACTIONS (4)
  - Dysarthria [Unknown]
  - Cold sweat [Recovered/Resolved]
  - Nausea [Recovered/Resolved]
  - Somnolence [Unknown]
